FAERS Safety Report 5761171-8 (Version None)
Quarter: 2008Q2

REPORT INFORMATION
  Report Type: 
  Country: None (occurrence: None)
  Receive Date: 20080606
  Receipt Date: 20080526
  Transmission Date: 20081010
  Serious: Yes (Hospitalization)
  Sender: FDA-Public Use
  Company Number: B0522446A

PATIENT
  Age: 88 Year
  Sex: Female

DRUGS (4)
  1. AUGMENTIN '125' [Suspect]
     Indication: DYSPNOEA
     Route: 048
     Dates: start: 20080301, end: 20080314
  2. PAROXETINE HCL [Suspect]
     Indication: DRUG USE FOR UNKNOWN INDICATION
     Route: 048
     Dates: end: 20080507
  3. VASTEN [Suspect]
     Indication: DRUG USE FOR UNKNOWN INDICATION
     Route: 048
     Dates: end: 20080507
  4. CORTICOIDS [Concomitant]
     Indication: DYSPNOEA
     Route: 065
     Dates: start: 20080301

REACTIONS (4)
  - CHOLESTATIC LIVER INJURY [None]
  - HEPATITIS CHOLESTATIC [None]
  - JAUNDICE [None]
  - PRURITUS [None]
